FAERS Safety Report 12197994 (Version 1)
Quarter: 2016Q1

REPORT INFORMATION
  Report Type: Spontaneous
  Country: US (occurrence: US)
  Receive Date: 20160322
  Receipt Date: 20160322
  Transmission Date: 20160526
  Serious: Yes (Other)
  Sender: FDA-Public Use
  Company Number: US-JNJFOC-20160206449

PATIENT
  Sex: Female

DRUGS (1)
  1. TOPIRAMATE. [Suspect]
     Active Substance: TOPIRAMATE
     Indication: TRANSIENT GLOBAL AMNESIA
     Route: 048

REACTIONS (3)
  - Transient global amnesia [Recovered/Resolved]
  - Product use issue [Unknown]
  - Off label use [Unknown]
